FAERS Safety Report 23510997 (Version 1)
Quarter: 2024Q1

REPORT INFORMATION
  Report Type: Spontaneous
  Country: US (occurrence: US)
  Receive Date: 20240212
  Receipt Date: 20240212
  Transmission Date: 20240410
  Serious: No
  Sender: FDA-Public Use
  Company Number: US-AstraZeneca-CH-00560106A

PATIENT

DRUGS (2)
  1. STRENSIQ [Suspect]
     Active Substance: ASFOTASE ALFA
     Indication: Hypophosphatasia
     Dosage: UNK UNK, TIW
     Route: 059
  2. STRENSIQ [Suspect]
     Active Substance: ASFOTASE ALFA
     Dosage: UNK, TWO TIMES A WEEK
     Route: 059

REACTIONS (1)
  - Injection site reaction [Unknown]
